FAERS Safety Report 4282415-8 (Version None)
Quarter: 2004Q1

REPORT INFORMATION
  Report Type: 
  Country: None (occurrence: None)
  Receive Date: 20040129
  Receipt Date: 20040123
  Transmission Date: 20041129
  Serious: Yes (Hospitalization)
  Sender: FDA-Public Use
  Company Number: FRWYE518020JAN04

PATIENT
  Age: 43 Year
  Sex: Male

DRUGS (4)
  1. CYCLOSPORINE [Suspect]
     Indication: PROPHYLAXIS AGAINST TRANSPLANT REJECTION
     Dosage: 320 MG AT EVENT, ONSET, ORAL; 280 MG DAILY
     Route: 048
     Dates: start: 20030320, end: 20040106
  2. CYCLOSPORINE [Suspect]
     Indication: PROPHYLAXIS AGAINST TRANSPLANT REJECTION
     Dosage: 320 MG AT EVENT, ONSET, ORAL; 280 MG DAILY
     Route: 048
     Dates: start: 20040107
  3. TRIATEX [Suspect]
     Route: 048
  4. CELLCEPT [Concomitant]

REACTIONS (3)
  - GASTROENTERITIS VIRAL [None]
  - NEUTROPENIA [None]
  - TUBULOINTERSTITIAL NEPHRITIS [None]
